FAERS Safety Report 15248080 (Version 5)
Quarter: 2018Q4

REPORT INFORMATION
  Report Type: Report from Study
  Country: CO (occurrence: CO)
  Receive Date: 20180807
  Receipt Date: 20181031
  Transmission Date: 20190204
  Serious: Yes (Other)
  Sender: FDA-Public Use
  Company Number: CO-ACTELION-A-CH2018-177044

PATIENT
  Age: 72 Year
  Sex: Female
  Weight: 80 kg

DRUGS (2)
  1. OPSUMIT [Suspect]
     Active Substance: MACITENTAN
     Indication: PULMONARY ARTERIAL HYPERTENSION
     Dosage: 10 MG, QD
     Route: 048
     Dates: start: 20170106, end: 20181005
  2. TADALAFILO [Concomitant]
     Indication: PULMONARY ARTERIAL HYPERTENSION
     Dosage: UNK
     Route: 048
     Dates: start: 20170106

REACTIONS (16)
  - Influenza [Not Recovered/Not Resolved]
  - Therapy cessation [Unknown]
  - Spinal fracture [Unknown]
  - Feeling of despair [Not Recovered/Not Resolved]
  - Dyspnoea [Not Recovered/Not Resolved]
  - Sneezing [Not Recovered/Not Resolved]
  - Mobility decreased [Unknown]
  - Feeling abnormal [Not Recovered/Not Resolved]
  - Product availability issue [Unknown]
  - Asphyxia [Not Recovered/Not Resolved]
  - Movement disorder [Not Recovered/Not Resolved]
  - Product distribution issue [Unknown]
  - Neck pain [Not Recovered/Not Resolved]
  - Malaise [Not Recovered/Not Resolved]
  - Chest pain [Not Recovered/Not Resolved]
  - Dependence on oxygen therapy [Unknown]

NARRATIVE: CASE EVENT DATE: 201810
